FAERS Safety Report 5499307-9 (Version None)
Quarter: 2007Q4

REPORT INFORMATION
  Report Type: 
  Country: None (occurrence: None)
  Receive Date: 20071026
  Receipt Date: 20071025
  Transmission Date: 20080405
  Serious: Yes (Disabling)
  Sender: FDA-Public Use
  Company Number: A0689766A

PATIENT
  Age: 45 Year
  Sex: Female

DRUGS (5)
  1. ALLI [Suspect]
     Route: 048
  2. ASPIRIN [Suspect]
     Route: 048
  3. FOLIC ACID [Suspect]
     Dates: end: 20071001
  4. IRON [Suspect]
     Dates: end: 20071001
  5. NONE [Concomitant]

REACTIONS (10)
  - ANAEMIA [None]
  - BLOOD IRON DECREASED [None]
  - DRUG INEFFECTIVE [None]
  - HAEMATOCRIT DECREASED [None]
  - HAEMOGLOBIN DECREASED [None]
  - MUSCLE HYPERTROPHY [None]
  - PLATELET COUNT DECREASED [None]
  - RED BLOOD CELL COUNT DECREASED [None]
  - TOOTHACHE [None]
  - VOLUME BLOOD DECREASED [None]
